FAERS Safety Report 25750411 (Version 1)
Quarter: 2025Q3

REPORT INFORMATION
  Report Type: Spontaneous
  Country: US (occurrence: None)
  Receive Date: 20250829
  Receipt Date: 20250829
  Transmission Date: 20251020
  Serious: Yes (Other)
  Sender: FDA-CTU
  Company Number: None

PATIENT
  Age: 56 Year
  Sex: Female

DRUGS (1)
  1. AMJEVITA [Suspect]
     Active Substance: ADALIMUMAB-ATTO
     Dosage: 40MG QOWK?

REACTIONS (6)
  - Rash [None]
  - Sneezing [None]
  - Ocular hyperaemia [None]
  - Eye pruritus [None]
  - Lacrimation increased [None]
  - Upper-airway cough syndrome [None]
